FAERS Safety Report 16368300 (Version 1)
Quarter: 2019Q2

REPORT INFORMATION
  Report Type: Spontaneous
  Country: FR (occurrence: FR)
  Receive Date: 20190529
  Receipt Date: 20190529
  Transmission Date: 20190711
  Serious: Yes (Hospitalization)
  Sender: FDA-Public Use
  Company Number: FR-TEVA-2019-FR-1056264

PATIENT
  Age: 68 Year
  Sex: Male

DRUGS (27)
  1. HYDROCHLOROTHIAZIDE. [Suspect]
     Active Substance: HYDROCHLOROTHIAZIDE
     Indication: PRODUCT USED FOR UNKNOWN INDICATION
     Dosage: 12.5 MILLIGRAM DAILY;
     Route: 048
     Dates: end: 20190402
  2. KARDEGIC [Concomitant]
     Active Substance: ASPIRIN DL-LYSINE
  3. LEVOFLOXACINE [Suspect]
     Active Substance: LEVOFLOXACIN
     Indication: DIABETIC FOOT
     Dosage: 250 MILLIGRAM
     Route: 048
     Dates: start: 20190329, end: 20190406
  4. OXYNORMORO [Concomitant]
     Active Substance: OXYCODONE HYDROCHLORIDE
  5. NOVORAPID [Concomitant]
     Active Substance: INSULIN ASPART
  6. LEVEMIR [Concomitant]
     Active Substance: INSULIN DETEMIR
  7. HYDROSOL POLYVITAMINE B O N [Concomitant]
     Active Substance: VITAMINS
  8. PHOSPHONEUROS [Concomitant]
     Active Substance: CALCIUM PHOSPHATE, DIBASIC, ANHYDROUS\MAGNESIUM GLYCEROPHOSPHATE\PHOSPHORIC ACID\SODIUM PHOSPHATE, DIBASIC
  9. CALCIPARINE [Concomitant]
     Active Substance: HEPARIN CALCIUM
  10. SPIRONOLACTONE. [Concomitant]
     Active Substance: SPIRONOLACTONE
  11. TELMISARTAN. [Suspect]
     Active Substance: TELMISARTAN
     Indication: PRODUCT USED FOR UNKNOWN INDICATION
     Dosage: 40 MILLIGRAM DAILY;
     Route: 048
     Dates: end: 20190402
  12. CALCIDIA [Concomitant]
     Active Substance: CALCIUM CARBONATE
  13. AMLODIPINE [Suspect]
     Active Substance: AMLODIPINE BESYLATE
     Indication: PRODUCT USED FOR UNKNOWN INDICATION
     Dosage: 10 MILLIGRAM DAILY;
     Route: 048
     Dates: end: 20190402
  14. RIFAMPICINE [Suspect]
     Active Substance: RIFAMPIN
     Indication: DIABETIC FOOT
     Dosage: 900 MILLIGRAM DAILY;
     Route: 048
     Dates: start: 20190329, end: 20190406
  15. ACUPAN [Concomitant]
     Active Substance: NEFOPAM HYDROCHLORIDE
  16. XATRAL [Concomitant]
     Active Substance: ALFUZOSIN
  17. FUROSEMIDE. [Suspect]
     Active Substance: FUROSEMIDE
     Indication: PRODUCT USED FOR UNKNOWN INDICATION
     Dosage: 40 MILLIGRAM DAILY;
     Route: 048
     Dates: end: 20190402
  18. LANSOPRAZOLE. [Suspect]
     Active Substance: LANSOPRAZOLE
     Indication: PRODUCT USED FOR UNKNOWN INDICATION
     Dosage: 30 MILLIGRAM DAILY;
     Route: 048
     Dates: end: 20190405
  19. ORBENINE 1 G, POUDRE POUR SOLUTION INJECTABLE (IV) [Suspect]
     Active Substance: CLOXACILLIN SODIUM
     Indication: DIABETIC FOOT
     Dosage: 6 GRAM DAILY;
     Route: 042
     Dates: start: 20190321, end: 20190329
  20. SPECIAFOLDINE [Concomitant]
     Active Substance: FOLIC ACID
  21. DEDROGYL [Concomitant]
     Active Substance: CALCIFEDIOL
  22. BICARBONATE DE POTASSIUM [Concomitant]
  23. BICARBONATE DE SODIUM [Concomitant]
     Active Substance: SODIUM BICARBONATE
  24. PARACETAMOL [Concomitant]
     Active Substance: ACETAMINOPHEN
  25. TRAMADOL (CHLORHYDRATE DE) [Suspect]
     Active Substance: TRAMADOL HYDROCHLORIDE
     Indication: PRODUCT USED FOR UNKNOWN INDICATION
     Dosage: 200 MILLIGRAM DAILY;
     Route: 048
     Dates: start: 20190312, end: 20190403
  26. SMECTA [Concomitant]
     Active Substance: MONTMORILLONITE
  27. EZETIMIBE. [Concomitant]
     Active Substance: EZETIMIBE

REACTIONS (1)
  - Thrombocytopenia [Recovered/Resolved]

NARRATIVE: CASE EVENT DATE: 20190403
